FAERS Safety Report 6441769-4 (Version None)
Quarter: 2009Q4

REPORT INFORMATION
  Report Type: 
  Country: None (occurrence: None)
  Receive Date: 20091116
  Receipt Date: 20091104
  Transmission Date: 20100525
  Serious: Yes (Hospitalization)
  Sender: FDA-Public Use
  Company Number: JP-PFIZER INC-2009165734

PATIENT
  Age: 72 Year
  Sex: Male
  Weight: 47 kg

DRUGS (8)
  1. SUNITINIB MALATE [Suspect]
     Indication: RENAL CELL CARCINOMA
     Dosage: 50 MG, 1X/DAY
     Route: 048
     Dates: start: 20081127
  2. WINTERMIN [Concomitant]
     Indication: HICCUPS
     Dosage: UNK
     Route: 048
     Dates: start: 20081210, end: 20081214
  3. URIEF [Concomitant]
     Indication: BENIGN PROSTATIC HYPERPLASIA
     Dosage: UNK
     Route: 048
  4. DAI-KENCHU-TO [Concomitant]
     Indication: CONSTIPATION
     Dosage: UNK
     Route: 048
  5. CALONAL [Concomitant]
     Indication: BONE PAIN
     Dosage: UNK
     Route: 048
  6. MUCOSTA [Concomitant]
     Indication: GASTRITIS
     Dosage: UNK
     Route: 048
     Dates: start: 20081208
  7. PRIMPERAN [Concomitant]
     Indication: HICCUPS
     Dosage: UNK
     Route: 048
     Dates: end: 20081216
  8. LOXONIN [Concomitant]
     Dosage: UNK
     Route: 048
     Dates: end: 20081214

REACTIONS (2)
  - MALAISE [None]
  - SEPSIS [None]
